FAERS Safety Report 5521640-2 (Version None)
Quarter: 2007Q4

REPORT INFORMATION
  Report Type: 
  Country: None (occurrence: None)
  Receive Date: 20071115
  Receipt Date: 20071030
  Transmission Date: 20080405
  Serious: Yes (Other)
  Sender: FDA-Public Use
  Company Number: 8027875

PATIENT
  Sex: Female

DRUGS (5)
  1. KEPPRA [Suspect]
     Dosage: 3000 MG/D
  2. KEPPRA [Suspect]
     Dosage: 1000 MG 2/D
  3. KEPPRA [Suspect]
     Dosage: 250 MG 2/D
  4. VALPROATE SODIUM [Concomitant]
  5. LAMICTAL [Concomitant]

REACTIONS (3)
  - ABORTION SPONTANEOUS [None]
  - DRUG EXPOSURE DURING PREGNANCY [None]
  - PREGNANCY [None]
